FAERS Safety Report 22379022 (Version 1)
Quarter: 2023Q2

REPORT INFORMATION
  Report Type: Spontaneous
  Country: US (occurrence: US)
  Receive Date: 20230529
  Receipt Date: 20230529
  Transmission Date: 20230721
  Serious: Yes (Hospitalization, Other)
  Sender: FDA-Public Use
  Company Number: US-Melinta Therapeutics, LLC-US-MLNT-23-00321

PATIENT
  Sex: Female

DRUGS (3)
  1. KIMYRSA [Suspect]
     Active Substance: ORITAVANCIN DIPHOSPHATE
     Indication: Product used for unknown indication
     Dosage: NOT PROVIDED
     Route: 041
     Dates: start: 202305, end: 202305
  2. KIMYRSA [Suspect]
     Active Substance: ORITAVANCIN DIPHOSPHATE
     Dosage: NOT PROVIDED
     Route: 041
     Dates: start: 20230519, end: 20230519
  3. DALBAVANCIN [Concomitant]
     Active Substance: DALBAVANCIN
     Indication: Product used for unknown indication
     Dosage: NOT PROVIDED
     Route: 065

REACTIONS (3)
  - Hypoxia [Unknown]
  - Malaise [Unknown]
  - Multiple use of single-use product [Unknown]

NARRATIVE: CASE EVENT DATE: 20230519
